FAERS Safety Report 4834161-7 (Version None)
Quarter: 2005Q4

REPORT INFORMATION
  Report Type: 
  Country: None (occurrence: None)
  Receive Date: 20051122
  Receipt Date: 20051111
  Transmission Date: 20060501
  Serious: Yes (Death, Hospitalization)
  Sender: FDA-Public Use
  Company Number: US-JNJFOC-20051103243

PATIENT
  Age: 9 Month
  Sex: Female
  Weight: 9.5 kg

DRUGS (8)
  1. ACETAMINOPHEN [Suspect]
  2. ACETAMINOPHEN [Suspect]
     Dosage: 1 TSP Q4H
  3. ACETAMINOPHEN [Suspect]
  4. ACETAMINOPHEN [Suspect]
  5. REGULAR STRENGTH ACETAMINOPHEN [Suspect]
     Route: 048
  6. REGULAR STRENGTH ACETAMINOPHEN [Suspect]
     Dosage: 325 MG TABLET(S) CRUSHED INTO INFANT'S FORMULA
     Route: 048
  7. OVER-THE-COUNTER COLD MEDICATION [Concomitant]
  8. INFANT'S FORMULA [Concomitant]
     Route: 048

REACTIONS (3)
  - HEPATIC FAILURE [None]
  - INCORRECT DRUG DOSAGE FORM ADMINISTERED [None]
  - OVERDOSE [None]
